FAERS Safety Report 16751545 (Version 1)
Quarter: 2019Q3

REPORT INFORMATION
  Report Type: Spontaneous
  Country: US (occurrence: US)
  Receive Date: 20190828
  Receipt Date: 20190828
  Transmission Date: 20191005
  Serious: Yes (Other)
  Sender: FDA-Public Use
  Company Number: US-ENDO PHARMACEUTICALS INC-2019-101870

PATIENT
  Age: 69 Year
  Sex: Female
  Weight: 63.49 kg

DRUGS (2)
  1. PREDNISONE. [Suspect]
     Active Substance: PREDNISONE
     Indication: IMMUNE-MEDIATED NECROTISING MYOPATHY
     Dosage: 80 MG, DAILY
     Route: 048
     Dates: start: 201711
  2. PREDNISONE. [Suspect]
     Active Substance: PREDNISONE
     Dosage: 30 MG, DAILY
     Route: 048

REACTIONS (5)
  - Osteoporosis [Unknown]
  - Weight fluctuation [Unknown]
  - Muscle strain [Unknown]
  - Off label use [Unknown]
  - Pelvic fracture [Unknown]

NARRATIVE: CASE EVENT DATE: 201711
